FAERS Safety Report 7971757-8 (Version None)
Quarter: 2011Q4

REPORT INFORMATION
  Report Type: 
  Country: None (occurrence: None)
  Receive Date: 20111212
  Receipt Date: 20111205
  Transmission Date: 20120403
  Serious: Yes (Other)
  Sender: FDA-Public Use
  Company Number: CHPA2011US016371

PATIENT
  Sex: Female

DRUGS (2)
  1. GAS-X EXTRA STRENGTH SOFTGELS [Suspect]
     Indication: ULTRASOUND KIDNEY
     Dosage: 1 DF, TID
     Route: 048
     Dates: start: 20111113, end: 20111113
  2. GAS-X EXTRA STRENGTH SOFTGELS [Suspect]
     Dosage: 1 DF, ONCE/SINGLE
     Route: 048
     Dates: start: 20111114, end: 20111114

REACTIONS (6)
  - ABDOMINAL DISTENSION [None]
  - OFF LABEL USE [None]
  - HYDRONEPHROSIS [None]
  - ABDOMINAL PAIN [None]
  - DIVERTICULITIS [None]
  - RENAL DISORDER [None]
